FAERS Safety Report 5524968-5 (Version None)
Quarter: 2007Q4

REPORT INFORMATION
  Report Type: 
  Country: None (occurrence: None)
  Receive Date: 20071126
  Receipt Date: 20071115
  Transmission Date: 20080405
  Serious: Yes (Death)
  Sender: FDA-Public Use
  Company Number: GB-ELI_LILLY_AND_COMPANY-GB200711001557

PATIENT
  Age: 84 Year
  Sex: Female

DRUGS (9)
  1. OLANZAPINE [Suspect]
     Indication: PSYCHOTIC DISORDER
     Dosage: 5 MG, 2/D
     Route: 048
     Dates: start: 20070817
  2. DEPIXOL [Concomitant]
     Indication: PSYCHOTIC DISORDER
     Dosage: 10 MG, 2/W
     Route: 030
     Dates: start: 20070817
  3. ALENDRONIC ACID [Concomitant]
     Indication: OSTEOPOROSIS
     Dosage: 700 MG, WEEKLY (1/W)
     Route: 048
  4. AMLODIPINE [Concomitant]
     Indication: HYPERTENSION
     Dosage: 5 MG, DAILY (1/D)
     Route: 048
     Dates: start: 20070816
  5. ASPIRIN [Concomitant]
     Dosage: 75 MG, 2/D
     Dates: start: 20070717, end: 20070813
  6. CALCICHEW [Concomitant]
     Indication: OSTEOPOROSIS
     Dosage: 2 D/F, DAILY (1/D)
     Route: 048
  7. DIPYRIDAMOLE [Concomitant]
     Dosage: 200 MG, 2/D
     Route: 048
  8. MEMANTINE HCL [Concomitant]
     Indication: DEMENTIA
     Dosage: 20 MG, DAILY (1/D)
     Route: 048
     Dates: start: 20070814, end: 20070816
  9. ZOPICLONE [Concomitant]
     Indication: INSOMNIA
     Dosage: 7.5 MG, DAILY (1/D)
     Route: 048

REACTIONS (2)
  - ABNORMAL BEHAVIOUR [None]
  - DEATH [None]
